FAERS Safety Report 8144436-4 (Version None)
Quarter: 2012Q1

REPORT INFORMATION
  Report Type: 
  Country: None (occurrence: None)
  Receive Date: 20120217
  Receipt Date: 20120206
  Transmission Date: 20120608
  Serious: Yes (Death, Hospitalization)
  Sender: FDA-Public Use
  Company Number: GB-SANOFI-AVENTIS-2011SA083286

PATIENT
  Age: 69 Year
  Sex: Female

DRUGS (10)
  1. TRIMETHOPRIM [Concomitant]
     Indication: PROPHYLAXIS URINARY TRACT INFECTION
     Route: 048
  2. CHLOROQUINE PHOSPHATE [Suspect]
     Indication: SARCOIDOSIS
     Route: 048
     Dates: start: 20050101
  3. OMEPRAZOLE [Concomitant]
  4. PREDNISOLONE [Concomitant]
     Indication: SARCOIDOSIS
     Route: 048
     Dates: start: 20050101
  5. ASPIRIN [Concomitant]
     Route: 065
  6. PROCHLORPERAZINE [Concomitant]
     Indication: NAUSEA
     Route: 048
  7. ATORVASTATIN [Concomitant]
     Route: 065
     Dates: start: 20090101
  8. FUROSEMIDE [Concomitant]
     Route: 065
  9. CALCIUM CARBONATE/SODIUM ALGINATE/SODIUM BICARBONATE [Concomitant]
     Route: 065
  10. XGEVA [Suspect]
     Indication: OSTEOPOROSIS
     Dosage: 60 MG, Q4MO
     Route: 058
     Dates: start: 20111116, end: 20111116

REACTIONS (4)
  - DEATH [None]
  - RENAL FAILURE ACUTE [None]
  - ACUTE HEPATIC FAILURE [None]
  - GENERAL PHYSICAL HEALTH DETERIORATION [None]
